FAERS Safety Report 16782428 (Version 7)
Quarter: 2022Q3

REPORT INFORMATION
  Report Type: Spontaneous
  Country: US (occurrence: None)
  Receive Date: 20190906
  Receipt Date: 20220802
  Transmission Date: 20221027
  Serious: Yes (Hospitalization, Other)
  Sender: FDA-Public Use
  Company Number: 2019SF26260

PATIENT
  Age: 15610 Day
  Sex: Female
  Weight: 145.2 kg

DRUGS (114)
  1. FARXIGA [Suspect]
     Active Substance: DAPAGLIFLOZIN PROPANEDIOL
     Indication: Type 2 diabetes mellitus
     Route: 048
     Dates: start: 20171120
  2. FARXIGA [Suspect]
     Active Substance: DAPAGLIFLOZIN PROPANEDIOL
     Indication: Weight decreased
     Route: 048
     Dates: start: 20171120
  3. FARXIGA [Suspect]
     Active Substance: DAPAGLIFLOZIN PROPANEDIOL
     Indication: Blood pressure decreased
     Route: 048
     Dates: start: 20171120
  4. FARXIGA [Suspect]
     Active Substance: DAPAGLIFLOZIN PROPANEDIOL
     Indication: Type 2 diabetes mellitus
     Route: 048
     Dates: start: 20161121
  5. FARXIGA [Suspect]
     Active Substance: DAPAGLIFLOZIN PROPANEDIOL
     Indication: Weight decreased
     Route: 048
     Dates: start: 20161121
  6. FARXIGA [Suspect]
     Active Substance: DAPAGLIFLOZIN PROPANEDIOL
     Indication: Blood pressure decreased
     Route: 048
     Dates: start: 20161121
  7. FARXIGA [Suspect]
     Active Substance: DAPAGLIFLOZIN PROPANEDIOL
     Indication: Type 2 diabetes mellitus
     Route: 048
     Dates: start: 20181219
  8. FARXIGA [Suspect]
     Active Substance: DAPAGLIFLOZIN PROPANEDIOL
     Indication: Weight decreased
     Route: 048
     Dates: start: 20181219
  9. FARXIGA [Suspect]
     Active Substance: DAPAGLIFLOZIN PROPANEDIOL
     Indication: Blood pressure decreased
     Route: 048
     Dates: start: 20181219
  10. FARXIGA [Suspect]
     Active Substance: DAPAGLIFLOZIN PROPANEDIOL
     Indication: Type 2 diabetes mellitus
     Route: 048
     Dates: start: 2016, end: 2019
  11. FARXIGA [Suspect]
     Active Substance: DAPAGLIFLOZIN PROPANEDIOL
     Indication: Weight decreased
     Route: 048
     Dates: start: 2016, end: 2019
  12. FARXIGA [Suspect]
     Active Substance: DAPAGLIFLOZIN PROPANEDIOL
     Indication: Blood pressure decreased
     Route: 048
     Dates: start: 2016, end: 2019
  13. FARXIGA [Suspect]
     Active Substance: DAPAGLIFLOZIN PROPANEDIOL
     Indication: Type 2 diabetes mellitus
     Route: 048
     Dates: start: 2017
  14. FARXIGA [Suspect]
     Active Substance: DAPAGLIFLOZIN PROPANEDIOL
     Indication: Weight decreased
     Route: 048
     Dates: start: 2017
  15. FARXIGA [Suspect]
     Active Substance: DAPAGLIFLOZIN PROPANEDIOL
     Indication: Blood pressure decreased
     Route: 048
     Dates: start: 2017
  16. FARXIGA [Suspect]
     Active Substance: DAPAGLIFLOZIN PROPANEDIOL
     Indication: Type 2 diabetes mellitus
     Route: 048
     Dates: start: 2018, end: 2019
  17. FARXIGA [Suspect]
     Active Substance: DAPAGLIFLOZIN PROPANEDIOL
     Indication: Weight decreased
     Route: 048
     Dates: start: 2018, end: 2019
  18. FARXIGA [Suspect]
     Active Substance: DAPAGLIFLOZIN PROPANEDIOL
     Indication: Blood pressure decreased
     Route: 048
     Dates: start: 2018, end: 2019
  19. XIGDUO XR [Suspect]
     Active Substance: DAPAGLIFLOZIN PROPANEDIOL\METFORMIN HYDROCHLORIDE
     Route: 048
  20. LANTUS [Concomitant]
     Active Substance: INSULIN GLARGINE
     Indication: Type 2 diabetes mellitus
     Dosage: 100 UNIT/ML
     Dates: start: 20190905
  21. LANTUS [Concomitant]
     Active Substance: INSULIN GLARGINE
     Indication: Type 2 diabetes mellitus
     Dosage: 100 UNIT/ML
  22. ROPINIROLE [Concomitant]
     Active Substance: ROPINIROLE
     Dates: start: 20190911
  23. LISINOPRIL [Concomitant]
     Active Substance: LISINOPRIL
     Indication: Hypertension
  24. HYDROCHLOROTHIAZIDE [Concomitant]
     Active Substance: HYDROCHLOROTHIAZIDE
  25. OXYCODONE [Concomitant]
     Active Substance: OXYCODONE
     Dates: start: 20190808
  26. NOVOLOG [Concomitant]
     Active Substance: INSULIN ASPART
     Dates: start: 20190716
  27. NOVOLOG [Concomitant]
     Active Substance: INSULIN ASPART
     Dates: start: 20190716
  28. VITAMIN D3 [Concomitant]
     Active Substance: CHOLECALCIFEROL
  29. GABAPENTIN [Concomitant]
     Active Substance: GABAPENTIN
     Indication: Neuropathy peripheral
     Dates: start: 20151122
  30. ACETAMINOPHEN\HYDROCODONE [Concomitant]
     Active Substance: ACETAMINOPHEN\HYDROCODONE
     Dates: start: 20160621
  31. KLONOPIN [Concomitant]
     Active Substance: CLONAZEPAM
  32. PERCOCET [Concomitant]
     Active Substance: ACETAMINOPHEN\OXYCODONE HYDROCHLORIDE
  33. AUGMENTIN [Concomitant]
     Active Substance: AMOXICILLIN\CLAVULANATE POTASSIUM
     Dates: start: 20170213
  34. AUGMENTIN [Concomitant]
     Active Substance: AMOXICILLIN\CLAVULANATE POTASSIUM
     Dates: start: 20190628
  35. DIFLUCAN [Concomitant]
     Active Substance: FLUCONAZOLE
  36. DOXYCYCLINE HYCLATE [Concomitant]
     Active Substance: DOXYCYCLINE HYCLATE
  37. PHENTERMINE [Concomitant]
     Active Substance: PHENTERMINE
  38. HUMULIN NOS [Concomitant]
     Active Substance: INSULIN HUMAN
     Indication: Type 2 diabetes mellitus
     Dates: start: 20151221
  39. HUMULIN NOS [Concomitant]
     Active Substance: INSULIN HUMAN
     Indication: Type 2 diabetes mellitus
     Dosage: U-500
  40. AMBIEN [Concomitant]
     Active Substance: ZOLPIDEM TARTRATE
     Dates: start: 20160428
  41. RELION [Concomitant]
  42. ESTRADIOL [Concomitant]
     Active Substance: ESTRADIOL
     Dates: start: 20160309
  43. DOXEPIN [Concomitant]
     Active Substance: DOXEPIN
  44. COREG [Concomitant]
     Active Substance: CARVEDILOL
  45. EMLA [Concomitant]
     Active Substance: LIDOCAINE\PRILOCAINE
  46. FLEXERIL [Concomitant]
     Active Substance: CYCLOBENZAPRINE HYDROCHLORIDE
     Dates: start: 20190808
  47. TRULICITY [Concomitant]
     Active Substance: DULAGLUTIDE
     Dates: start: 20191028
  48. PRINZIDE [Concomitant]
     Active Substance: HYDROCHLOROTHIAZIDE\LISINOPRIL
  49. OSCAL [Concomitant]
     Active Substance: CALCIUM CARBONATE
  50. VITAMIN D2 [Concomitant]
     Active Substance: ERGOCALCIFEROL
  51. SULFAMETHOXAZOLE\TRIMETHOPRIM [Concomitant]
     Active Substance: SULFAMETHOXAZOLE\TRIMETHOPRIM
  52. ADDERALL [Concomitant]
     Active Substance: AMPHETAMINE ASPARTATE\AMPHETAMINE SULFATE\DEXTROAMPHETAMINE SACCHARATE\DEXTROAMPHETAMINE SULFATE
     Dates: start: 20190808
  53. GLUCOPHAGE [Concomitant]
     Active Substance: METFORMIN HYDROCHLORIDE
     Dates: start: 20160321
  54. HUMALOG [Concomitant]
     Active Substance: INSULIN LISPRO
  55. LEVEMIR [Concomitant]
     Active Substance: INSULIN DETEMIR
  56. LIDOCAINE [Concomitant]
     Active Substance: LIDOCAINE
  57. SERTRALINE [Concomitant]
     Active Substance: SERTRALINE HYDROCHLORIDE
  58. DEXTROAMPHETAMINE [Concomitant]
     Active Substance: DEXTROAMPHETAMINE
  59. APIS MELLIFICA/FUMARIC ACID/MYOSOTIS ARVENSIS/MAGNESIUM PHOSPHATE/OXAL [Concomitant]
  60. BETAMETHASONE/KETOROLAC [Concomitant]
  61. NARCAN [Concomitant]
     Active Substance: NALOXONE HYDROCHLORIDE
  62. DEMEROL [Concomitant]
     Active Substance: MEPERIDINE HYDROCHLORIDE
  63. TRANDATE [Concomitant]
     Active Substance: LABETALOL HYDROCHLORIDE
  64. VASOTEC [Concomitant]
     Active Substance: ENALAPRIL MALEATE
  65. BUPIVACAINE [Concomitant]
     Active Substance: BUPIVACAINE
  66. FENTANYL [Concomitant]
     Active Substance: FENTANYL
  67. MORPHINE [Concomitant]
     Active Substance: MORPHINE
  68. PROPOFOL [Concomitant]
     Active Substance: PROPOFOL
  69. HYDROMORPHONE [Concomitant]
     Active Substance: HYDROMORPHONE
  70. MIDAZOLAM [Concomitant]
     Active Substance: MIDAZOLAM
  71. SUCCINYLCHOLINE [Concomitant]
     Active Substance: SUCCINYLCHOLINE
  72. CALCIUM CARBONATE [Concomitant]
     Active Substance: CALCIUM CARBONATE
  73. DRONABINOL [Concomitant]
     Active Substance: DRONABINOL
  74. BISACODYL [Concomitant]
     Active Substance: BISACODYL
  75. HEPARIN/PLASMA PROTEIN FRACTION (HUMAN)/FACTOR IX/FACTOR X (STUART PRO [Concomitant]
  76. ZITHROMAX [Concomitant]
     Active Substance: AZITHROMYCIN DIHYDRATE
  77. ALDACTONE [Concomitant]
     Active Substance: SPIRONOLACTONE
  78. ESOMEPRAZOLE [Concomitant]
     Active Substance: ESOMEPRAZOLE
  79. CLARITIN [Concomitant]
     Active Substance: LORATADINE
  80. CEFTRIAXONE [Concomitant]
     Active Substance: CEFTRIAXONE
  81. SINEMET [Concomitant]
     Active Substance: CARBIDOPA\LEVODOPA
  82. NIFEDIPINE [Concomitant]
     Active Substance: NIFEDIPINE
  83. KETALAR [Concomitant]
     Active Substance: KETAMINE HYDROCHLORIDE
  84. ADRENAL CORTICAL EXTRACT/PANCREAS EXTRACT/PHENOBARBITAL/ACETANILIDE/CR [Concomitant]
  85. NALBUPHINE [Concomitant]
     Active Substance: NALBUPHINE
  86. OXYTOCIN [Concomitant]
     Active Substance: OXYTOCIN
  87. COLACE [Concomitant]
     Active Substance: DOCUSATE SODIUM
  88. BENADRYL [Concomitant]
     Active Substance: DIPHENHYDRAMINE HYDROCHLORIDE
  89. PROMETHAZINE HYDROCHLORIDE/PETHIDINE HYDROCHLORIDE [Concomitant]
  90. PHENERGAN [Concomitant]
     Active Substance: PROMETHAZINE HYDROCHLORIDE
  91. ROBAXIN [Concomitant]
     Active Substance: METHOCARBAMOL
  92. SILVADENE [Concomitant]
     Active Substance: SILVER SULFADIAZINE
  93. ZOFRAN [Concomitant]
     Active Substance: ONDANSETRON HYDROCHLORIDE
  94. ACYCLOVIR [Concomitant]
     Active Substance: ACYCLOVIR
  95. GLYBURIDE [Concomitant]
     Active Substance: GLYBURIDE
  96. KLOR-CON [Concomitant]
     Active Substance: POTASSIUM CHLORIDE
  97. VYVANSE [Concomitant]
     Active Substance: LISDEXAMFETAMINE DIMESYLATE
     Dates: start: 20151202
  98. ATORVASTATIN [Concomitant]
     Active Substance: ATORVASTATIN
     Dates: start: 20190723
  99. MOTRIN [Concomitant]
     Active Substance: IBUPROFEN
     Route: 065
     Dates: start: 20190613
  100. LACTIC ACID [Concomitant]
     Active Substance: LACTIC ACID
     Route: 065
     Dates: start: 20190613
  101. NEXIUM [Concomitant]
     Active Substance: ESOMEPRAZOLE MAGNESIUM
  102. ENOXAPARIN [Concomitant]
     Active Substance: ENOXAPARIN
  103. CYCLOBENZAPRINE [Concomitant]
     Active Substance: CYCLOBENZAPRINE
  104. GLUCAGON [Concomitant]
     Active Substance: GLUCAGON
  105. PROMETHAZINE [Concomitant]
     Active Substance: PROMETHAZINE HYDROCHLORIDE
  106. SODIUM CHLORIDE [Concomitant]
     Active Substance: SODIUM CHLORIDE
  107. INSULIN NOS [Concomitant]
     Active Substance: INSULIN NOS
  108. AMPHETAMINE [Concomitant]
     Active Substance: AMPHETAMINE
  109. OXYCODONE [Concomitant]
     Active Substance: OXYCODONE
  110. AMPHETAM/DEXTROAMP [Concomitant]
     Dates: start: 20211119
  111. METFORMIN [Concomitant]
     Active Substance: METFORMIN HYDROCHLORIDE
     Indication: Type 2 diabetes mellitus
     Dosage: 1000MG
  112. SPIRONOLACTONE [Concomitant]
     Active Substance: SPIRONOLACTONE
     Indication: Hypertension
  113. LYRICA [Concomitant]
     Active Substance: PREGABALIN
     Indication: Neuropathy peripheral
  114. INVOKANA [Concomitant]
     Active Substance: CANAGLIFLOZIN
     Indication: Diabetes mellitus

REACTIONS (14)
  - Fournier^s gangrene [Unknown]
  - Sepsis [Unknown]
  - Perineal cellulitis [Unknown]
  - Necrotising fasciitis [Unknown]
  - Perineal abscess [Unknown]
  - Cellulitis [Unknown]
  - Gangrene [Unknown]
  - Cellulitis gangrenous [Unknown]
  - Vulval cellulitis [Unknown]
  - Vulval abscess [Unknown]
  - Urinary tract infection [Unknown]
  - Vulvitis [Unknown]
  - Genital abscess [Unknown]
  - Anal abscess [Unknown]

NARRATIVE: CASE EVENT DATE: 20190614
